FAERS Safety Report 4459286-X (Version None)
Quarter: 2004Q3

REPORT INFORMATION
  Report Type: 
  Country: None (occurrence: None)
  Receive Date: 20040920
  Receipt Date: 20040920
  Transmission Date: 20050211
  Serious: No
  Sender: FDA-Public Use
  Company Number: None

PATIENT
  Age: 40 Year
  Sex: Female
  Weight: 65.7716 kg

DRUGS (3)
  1. LORTAB [Suspect]
     Indication: FIBROMYALGIA
     Dosage: PRN ORAL
     Route: 048
     Dates: start: 20020110, end: 20040921
  2. LORTAB [Suspect]
     Indication: MIGRAINE
     Dosage: PRN ORAL
     Route: 048
     Dates: start: 20020110, end: 20040921
  3. LORTAB [Suspect]
     Indication: RESTLESS LEGS SYNDROME
     Dosage: PRN ORAL
     Route: 048
     Dates: start: 20020110, end: 20040921

REACTIONS (4)
  - ALCOHOL USE [None]
  - DRUG INEFFECTIVE [None]
  - LIVER DISORDER [None]
  - PHARMACEUTICAL PRODUCT COMPLAINT [None]
